FAERS Safety Report 25577954 (Version 4)
Quarter: 2025Q4

REPORT INFORMATION
  Report Type: Spontaneous
  Country: IN (occurrence: IN)
  Receive Date: 20250718
  Receipt Date: 20251201
  Transmission Date: 20260118
  Serious: Yes (Hospitalization)
  Sender: MERCK SHARP & DOHME LLC
  Company Number: IN-ASTRAZENECA-202507GLO000749IN

PATIENT
  Age: 73 Year
  Sex: Female
  Weight: 69 kg

DRUGS (12)
  1. PEMBROLIZUMAB [Suspect]
     Active Substance: PEMBROLIZUMAB
     Indication: PD-L1 positive cancer
     Dosage: 200 MG
     Route: 042
     Dates: start: 20250419, end: 20250627
  2. CARBOXYMETHYLCELLULOSE SODIUM\GLYCERIN [Concomitant]
     Active Substance: CARBOXYMETHYLCELLULOSE SODIUM\GLYCERIN
     Indication: Dry eye
     Dosage: 0.5 THREE TIMES A DAY
     Route: 047
     Dates: start: 2008
  3. TELMISARTAN [Concomitant]
     Active Substance: TELMISARTAN
     Indication: Hypertension
     Dosage: 40 MG, QD
     Route: 048
     Dates: start: 2005
  4. ROSUVASTATIN CALCIUM [Concomitant]
     Active Substance: ROSUVASTATIN CALCIUM
     Indication: Dyslipidaemia
     Dosage: 10 MILLIGRAM
     Route: 050
     Dates: start: 2005
  5. GLIMEPIRIDE [Concomitant]
     Active Substance: GLIMEPIRIDE
     Indication: Diabetes mellitus
     Dosage: 60 MG, QD (30 MILLIGRAM, BID)
     Route: 048
     Dates: start: 2005
  6. FEXOFENADINE HYDROCHLORIDE [Concomitant]
     Active Substance: FEXOFENADINE HYDROCHLORIDE
     Indication: Urticaria
     Dosage: 240 MG, QD (120 MG, BID)
     Route: 050
     Dates: start: 20250605
  7. INSULIN NOS [Concomitant]
     Active Substance: INSULIN NOS
     Indication: Diabetes mellitus
     Dosage: 100 INTERNATIONAL UNIT PER MILLILITRE, TID
     Route: 058
     Dates: start: 2005
  8. METFORMIN HYDROCHLORIDE\SITAGLIPTIN PHOSPHATE [Concomitant]
     Active Substance: METFORMIN HYDROCHLORIDE\SITAGLIPTIN PHOSPHATE
     Indication: Diabetes mellitus
     Dosage: 1000 MG, QD (500 MILLIGRAM, BID)
     Route: 048
     Dates: start: 2005
  9. DOMPERIDONE\PANTOPRAZOLE SODIUM [Concomitant]
     Active Substance: DOMPERIDONE\PANTOPRAZOLE SODIUM
     Indication: Decreased appetite
     Dosage: 140 MG, QD (70 MILLIGRAM, BID)
     Route: 050
     Dates: start: 20250607
  10. MET XL [Concomitant]
     Indication: Hypertension
     Dosage: 100 MG, QD (50 MILLIGRAM, BID)
     Route: 050
     Dates: start: 2005
  11. ALBUTEROL\IPRATROPIUM BROMIDE [Concomitant]
     Active Substance: ALBUTEROL\IPRATROPIUM BROMIDE
     Indication: Dyspnoea
     Dosage: 1, 3 TIMES PER DAY
     Route: 055
     Dates: start: 20250313
  12. BUDESONIDE\FORMOTEROL FUMARATE [Concomitant]
     Active Substance: BUDESONIDE\FORMOTEROL FUMARATE
     Indication: Dyspnoea
     Dosage: 1.5 MG, QD (0.5 MILLIGRAM, TID)
     Route: 055
     Dates: start: 20250313

REACTIONS (1)
  - Gastroenteritis [Recovered/Resolved]

NARRATIVE: CASE EVENT DATE: 20250701
